FAERS Safety Report 9542013 (Version 3)
Quarter: 2013Q4

REPORT INFORMATION
  Report Type: Report from Study
  Country: JP (occurrence: JP)
  Receive Date: 20130923
  Receipt Date: 20131225
  Transmission Date: 20140711
  Serious: Yes (Hospitalization)
  Sender: FDA-Public Use
  Company Number: JP-AMGEN-JPNCT2013066540

PATIENT
  Age: 88 Year
  Sex: Female
  Weight: 49 kg

DRUGS (6)
  1. DARBEPOETIN ALFA [Suspect]
     Indication: NEPHROGENIC ANAEMIA
     Dosage: 120 MUG, QD
     Route: 040
     Dates: start: 20110805, end: 20130423
  2. URALYT U [Concomitant]
     Indication: CALCULUS URETERIC
     Dosage: UNK
     Route: 048
  3. KREMEZIN [Concomitant]
     Indication: GLOMERULONEPHRITIS CHRONIC
     Dosage: UNK
     Route: 048
  4. URINORM [Concomitant]
     Dosage: UNK
     Route: 048
  5. SALOBEL [Concomitant]
     Dosage: UNK
     Route: 048
  6. ALFAROL [Concomitant]
     Indication: GLOMERULONEPHRITIS CHRONIC
     Dosage: UNK
     Route: 048

REACTIONS (2)
  - Cardiac failure [Unknown]
  - Hypertension [Unknown]
